FAERS Safety Report 8059586-0 (Version None)
Quarter: 2012Q1

REPORT INFORMATION
  Report Type: 
  Country: None (occurrence: None)
  Receive Date: 20120113
  Receipt Date: 20120104
  Transmission Date: 20120608
  Serious: Yes (Death, Life-Threatening)
  Sender: FDA-Public Use
  Company Number: 1000026838

PATIENT
  Age: 66 Year
  Sex: Male

DRUGS (4)
  1. SIMVASTATIN [Concomitant]
  2. LORAZEPAM [Concomitant]
  3. TAMSULOSIN HCL [Concomitant]
  4. CITALOPRAM HYDROBROMIDE [Suspect]
     Indication: DEPRESSION
     Dosage: 20 MG (20 MG, 1 IN 1 D), ORAL
     Route: 048
     Dates: start: 20111005, end: 20111016

REACTIONS (3)
  - GRAND MAL CONVULSION [None]
  - FALL [None]
  - COMPLETED SUICIDE [None]
